FAERS Safety Report 5977338-X (Version None)
Quarter: 2008Q4

REPORT INFORMATION
  Report Type: 
  Country: None (occurrence: None)
  Receive Date: 20081203
  Receipt Date: 20081124
  Transmission Date: 20090506
  Serious: Yes (Other)
  Sender: FDA-Public Use
  Company Number: PHHY2008BR29796

PATIENT
  Age: 77 Year
  Sex: Female

DRUGS (2)
  1. EXELON [Suspect]
     Indication: DEMENTIA ALZHEIMER'S TYPE
     Dosage: 1 PATCH A DAY
     Route: 062
  2. NEOZINE [Concomitant]
     Indication: SLEEP DISORDER
     Dosage: 3 DROPS AT NIGHT
     Route: 048

REACTIONS (8)
  - CANDIDIASIS [None]
  - CONJUNCTIVAL HYPERAEMIA [None]
  - CONJUNCTIVITIS [None]
  - EFFUSION [None]
  - HEPATITIS [None]
  - LACRIMATION INCREASED [None]
  - NASOPHARYNGITIS [None]
  - PNEUMONIA [None]
